FAERS Safety Report 7621647-5 (Version None)
Quarter: 2011Q3

REPORT INFORMATION
  Report Type: 
  Country: None (occurrence: None)
  Receive Date: 20110719
  Receipt Date: 20110711
  Transmission Date: 20111222
  Serious: Yes (Other)
  Sender: FDA-Public Use
  Company Number: ES-BAYER-2011-048800

PATIENT
  Age: 80 Year
  Sex: Male

DRUGS (5)
  1. ASPIRIN [Concomitant]
     Indication: CEREBROVASCULAR ACCIDENT PROPHYLAXIS
     Dosage: DAILY DOSE 100 MG
     Route: 048
  2. ACTIRA [Suspect]
     Indication: LOWER RESPIRATORY TRACT INFECTION
     Dosage: 400 MG, QD
     Route: 048
     Dates: start: 20110530, end: 20110603
  3. LEXATIN [Concomitant]
     Indication: ANXIETY
     Dosage: DAILY DOSE 3 MG
     Route: 048
  4. PAROXETINE HCL [Concomitant]
     Dosage: 1/28 DAYS
  5. CYCLOPHOSPHAMIDE [Concomitant]
     Indication: CHRONIC LYMPHOCYTIC LEUKAEMIA
     Route: 048

REACTIONS (3)
  - DIPLOPIA [None]
  - IVTH NERVE PARESIS [None]
  - VISION BLURRED [None]
